FAERS Safety Report 6059452-6 (Version None)
Quarter: 2009Q1

REPORT INFORMATION
  Report Type: 
  Country: None (occurrence: None)
  Receive Date: 20090127
  Receipt Date: 20090127
  Transmission Date: 20090719
  Serious: Yes (Life-Threatening, Hospitalization, Disabling)
  Sender: FDA-Public Use
  Company Number: None

PATIENT
  Age: 37 Year
  Sex: Female
  Weight: 76.2043 kg

DRUGS (1)
  1. YAZ [Suspect]
     Indication: CONTRACEPTION
     Dosage: ONE PILL PER DAY ONE TIME PER DAY
     Dates: start: 20080401, end: 20080501

REACTIONS (14)
  - ACTIVITIES OF DAILY LIVING IMPAIRED [None]
  - ADRENAL INSUFFICIENCY [None]
  - ANXIETY [None]
  - APPARENT DEATH [None]
  - BLOOD PRESSURE INADEQUATELY CONTROLLED [None]
  - CARDIAC DISORDER [None]
  - DYSPNOEA [None]
  - ECONOMIC PROBLEM [None]
  - GAIT DISTURBANCE [None]
  - HYPERTENSION [None]
  - IMPAIRED SELF-CARE [None]
  - PALPITATIONS [None]
  - POSTURAL ORTHOSTATIC TACHYCARDIA SYNDROME [None]
  - UNEMPLOYMENT [None]
